FAERS Safety Report 23754544 (Version 2)
Quarter: 2024Q2

REPORT INFORMATION
  Report Type: Other
  Country: GB (occurrence: GB)
  Receive Date: 20240418
  Receipt Date: 20240428
  Transmission Date: 20240716
  Serious: Yes (Disabling, Other)
  Sender: FDA-Public Use
  Company Number: None

PATIENT

DRUGS (4)
  1. GABAPENTIN [Suspect]
     Active Substance: GABAPENTIN
     Indication: Headache
     Dosage: 300 MILLIGRAM, TID
     Route: 065
     Dates: start: 20230902, end: 20230908
  2. GABAPENTIN [Suspect]
     Active Substance: GABAPENTIN
     Indication: Pain
  3. AMLODIPINE [Concomitant]
     Active Substance: AMLODIPINE BESYLATE
     Indication: Cerebrovascular accident
     Dosage: UNK
     Route: 065
     Dates: start: 20090303
  4. ATORVASTATIN [Concomitant]
     Active Substance: ATORVASTATIN
     Indication: Cerebrovascular accident
     Dosage: UNK
     Route: 065
     Dates: start: 20090303

REACTIONS (8)
  - Intellectual disability [Not Recovered/Not Resolved]
  - Gait inability [Unknown]
  - Illogical thinking [Unknown]
  - Impaired reasoning [Unknown]
  - Speech disorder [Unknown]
  - Memory impairment [Unknown]
  - Medication error [Unknown]
  - Aphasia [Unknown]

NARRATIVE: CASE EVENT DATE: 20230908
